FAERS Safety Report 13990780 (Version 1)
Quarter: 2017Q3

REPORT INFORMATION
  Report Type: Spontaneous
  Country: US (occurrence: US)
  Receive Date: 20170920
  Receipt Date: 20170920
  Transmission Date: 20171128
  Serious: No
  Sender: FDA-Public Use
  Company Number: US-RECKITT BENCKISER HEALTHCARE INT LIMITED-RB-80190-2017

PATIENT
  Sex: Male

DRUGS (2)
  1. MUCINEX [Suspect]
     Active Substance: GUAIFENESIN
     Indication: RHINORRHOEA
  2. MUCINEX [Suspect]
     Active Substance: GUAIFENESIN
     Indication: NASAL CONGESTION
     Dosage: 600 MG, BID (EVERY 12 HOURS)
     Route: 065
     Dates: start: 20161204, end: 20161207

REACTIONS (2)
  - Drug ineffective [Not Recovered/Not Resolved]
  - Expired product administered [Unknown]
